FAERS Safety Report 10144574 (Version 1)
Quarter: 2014Q2

REPORT INFORMATION
  Report Type: Spontaneous
  Country: US (occurrence: US)
  Receive Date: 20140430
  Receipt Date: 20140430
  Transmission Date: 20141212
  Serious: No
  Sender: FDA-Public Use
  Company Number: US-SANOFI-AVENTIS-2013SA043674

PATIENT
  Age: 56 Year
  Sex: Male
  Weight: 74.8 kg

DRUGS (5)
  1. LOVENOX [Suspect]
     Indication: THROMBOSIS
     Route: 065
  2. WARFARIN [Suspect]
     Indication: PRODUCT USED FOR UNKNOWN INDICATION
     Route: 065
  3. INSULIN [Suspect]
     Indication: PRODUCT USED FOR UNKNOWN INDICATION
     Route: 065
  4. LEVEMIR [Concomitant]
     Indication: TYPE 2 DIABETES MELLITUS
  5. NOVOLOG [Concomitant]
     Indication: TYPE 2 DIABETES MELLITUS

REACTIONS (7)
  - International normalised ratio abnormal [Unknown]
  - Abdominal distension [Unknown]
  - Injection site pain [Unknown]
  - Tenderness [Unknown]
  - Feeling abnormal [Unknown]
  - Thrombosis [Unknown]
  - Blood disorder [Unknown]
